FAERS Safety Report 14294699 (Version 1)
Quarter: 2017Q4

REPORT INFORMATION
  Report Type: Spontaneous
  Country: BR (occurrence: BR)
  Receive Date: 20171218
  Receipt Date: 20171218
  Transmission Date: 20180321
  Serious: Yes (Other)
  Sender: FDA-Public Use
  Company Number: BR-ACCORD-061870

PATIENT
  Age: 67 Year
  Sex: Female

DRUGS (2)
  1. CAPECITABINE. [Suspect]
     Active Substance: CAPECITABINE
     Indication: ANAL SQUAMOUS CELL CARCINOMA
     Dosage: TWICE DAILY DURING THE DAYS OF RADIOTHERAPY
  2. MITOMYCIN. [Suspect]
     Active Substance: MITOMYCIN
     Indication: ANAL SQUAMOUS CELL CARCINOMA
     Dosage: GIVEN ON DAY 1

REACTIONS (2)
  - Radiation skin injury [Unknown]
  - Diarrhoea [Unknown]
